FAERS Safety Report 25713980 (Version 2)
Quarter: 2025Q4

REPORT INFORMATION
  Report Type: Spontaneous
  Country: US (occurrence: US)
  Receive Date: 20250822
  Receipt Date: 20251121
  Transmission Date: 20260118
  Serious: Yes (Other)
  Sender: JOHNSON AND JOHNSON
  Company Number: US-JNJFOC-20250816770

PATIENT
  Age: 65 Year
  Sex: Female

DRUGS (1)
  1. TALQUETAMAB [Suspect]
     Active Substance: TALQUETAMAB
     Indication: Plasma cell myeloma refractory
     Route: 065

REACTIONS (6)
  - Cytokine release syndrome [Recovered/Resolved]
  - Dizziness [Recovering/Resolving]
  - Hyponatraemia [Recovered/Resolved]
  - Gait disturbance [Recovering/Resolving]
  - Fall [Recovering/Resolving]
  - Oral toxicity [Recovered/Resolved]
